FAERS Safety Report 8425593-9 (Version None)
Quarter: 2012Q2

REPORT INFORMATION
  Report Type: 
  Country: None (occurrence: None)
  Receive Date: 20120601
  Receipt Date: 20120524
  Transmission Date: 20120825
  Serious: Yes (Hospitalization, Other)
  Sender: FDA-Public Use
  Company Number: 2012SP016456

PATIENT
  Age: 63 Year
  Sex: Male
  Weight: 72 kg

DRUGS (9)
  1. CLOBETASOL PROPIONATE [Concomitant]
  2. CONIEL (BENIDIPINE HYDROCHLORIDE) [Suspect]
     Indication: PRODUCT USED FOR UNKNOWN INDICATION
     Dosage: , , PO
     Route: 048
  3. REBETOL [Suspect]
     Indication: HEPATITIS C
     Dosage: 1000 MG;QD;PO, 800 MG;QD;PO, 600 MG;QD;PO, 400 MG;QD; PO, 200 MG;QD;PO
     Route: 048
     Dates: start: 20120310
  4. REBETOL [Suspect]
     Indication: HEPATITIS C
     Dosage: 1000 MG;QD;PO, 800 MG;QD;PO, 600 MG;QD;PO, 400 MG;QD; PO, 200 MG;QD;PO
     Route: 048
     Dates: start: 20120207, end: 20120306
  5. REBETOL [Suspect]
     Indication: HEPATITIS C
     Dosage: 1000 MG;QD;PO, 800 MG;QD;PO, 600 MG;QD;PO, 400 MG;QD; PO, 200 MG;QD;PO
     Route: 048
     Dates: start: 20120307, end: 20120309
  6. PEG-INTRON [Suspect]
     Indication: HEPATITIS C
     Dosage: 1.5 MCG/KG;QW;SC
     Route: 058
     Dates: start: 20120207
  7. ALLOPURINOL [Concomitant]
  8. TELAVIC (TELAPREVIR) (INVESTIGATIONAL DRUG) (2250 MG) [Suspect]
     Indication: HEPATITIS C
     Dosage: 2250 MG;QD;PO, 1500 MG;QD;PO,
     Dates: start: 20120207, end: 20120307
  9. TELAVIC (TELAPREVIR) (INVESTIGATIONAL DRUG) (2250 MG) [Suspect]
     Indication: HEPATITIS C
     Dosage: 2250 MG;QD;PO, 1500 MG;QD;PO,
     Dates: start: 20120308

REACTIONS (11)
  - DECREASED APPETITE [None]
  - RENAL DISORDER [None]
  - BLOOD UREA INCREASED [None]
  - HYPOTENSION [None]
  - DIZZINESS [None]
  - HYPERURICAEMIA [None]
  - ANAEMIA [None]
  - RASH [None]
  - VOMITING [None]
  - SYNCOPE [None]
  - GAIT DISTURBANCE [None]
